FAERS Safety Report 20119629 (Version 2)
Quarter: 2021Q4

REPORT INFORMATION
  Report Type: Report from Study
  Country: HU (occurrence: HU)
  Receive Date: 20211126
  Receipt Date: 20211211
  Transmission Date: 20220303
  Serious: No
  Sender: FDA-Public Use
  Company Number: HU-NOVARTISPH-NVSC2021HU267471

PATIENT
  Sex: Female

DRUGS (1)
  1. METFORMIN HYDROCHLORIDE\VILDAGLIPTIN [Suspect]
     Active Substance: METFORMIN HYDROCHLORIDE\VILDAGLIPTIN
     Indication: Diabetes mellitus
     Dosage: 50 MG / 1000 MG
     Route: 065

REACTIONS (3)
  - Burn oesophageal [Recovered/Resolved]
  - Dyspepsia [Recovered/Resolved]
  - Eructation [Recovered/Resolved]
